FAERS Safety Report 20062749 (Version 1)
Quarter: 2021Q4

REPORT INFORMATION
  Report Type: Report from Study
  Country: BR (occurrence: BR)
  Receive Date: 20211112
  Receipt Date: 20211112
  Transmission Date: 20220304
  Serious: Yes (Life-Threatening, Hospitalization)
  Sender: FDA-Public Use
  Company Number: BR-NOVARTISPH-NVSC2021BR257766

PATIENT
  Sex: Female

DRUGS (4)
  1. AMLODIPINE\VALSARTAN [Suspect]
     Active Substance: AMLODIPINE\VALSARTAN
     Indication: Product used for unknown indication
     Dosage: (STARTED MORE OR LESS FIFTEEN YEARS)
     Route: 065
     Dates: end: 20211006
  2. LOSARTAN POTASSIUM [Suspect]
     Active Substance: LOSARTAN POTASSIUM
     Indication: Product used for unknown indication
     Dosage: (STOP DATE: MORE OR LESS TWO WEEKS)
     Route: 065
     Dates: start: 20211007
  3. BRAVAN [Concomitant]
     Indication: Product used for unknown indication
     Dosage: 160 MG
     Route: 065
     Dates: end: 20211108
  4. VALSARTAN [Concomitant]
     Active Substance: VALSARTAN
     Indication: Product used for unknown indication
     Dosage: (160/5)
     Route: 065
     Dates: end: 20211108

REACTIONS (4)
  - Near death experience [Unknown]
  - Malaise [Unknown]
  - Ill-defined disorder [Unknown]
  - Drug intolerance [Unknown]
